FAERS Safety Report 19272261 (Version 1)
Quarter: 2021Q2

REPORT INFORMATION
  Report Type: Spontaneous
  Country: ZA (occurrence: ZA)
  Receive Date: 20210519
  Receipt Date: 20210519
  Transmission Date: 20210717
  Serious: Yes (Hospitalization)
  Sender: FDA-Public Use
  Company Number: ZA-NOVOPROD-811993

PATIENT
  Sex: Female
  Weight: 2.8 kg

DRUGS (2)
  1. LEVEMIR [Suspect]
     Active Substance: INSULIN DETEMIR
     Indication: TYPE 1 DIABETES MELLITUS
     Dosage: 18 IU, BID
     Route: 064
     Dates: end: 20201220
  2. NOVORAPID [Suspect]
     Active Substance: INSULIN ASPART
     Indication: TYPE 1 DIABETES MELLITUS
     Dosage: DOSED ACCORDING TO THE BGL READINGS AND CARBOHYDRATE COUNT TID
     Route: 064
     Dates: end: 20201220

REACTIONS (3)
  - Foetal exposure during pregnancy [Recovered/Resolved]
  - Premature baby [Unknown]
  - Pulmonary dysmaturity syndrome [Recovered/Resolved]

NARRATIVE: CASE EVENT DATE: 202012
